FAERS Safety Report 19531011 (Version 2)
Quarter: 2021Q3

REPORT INFORMATION
  Report Type: Other
  Country: CA (occurrence: CA)
  Receive Date: 20210714
  Receipt Date: 20210907
  Transmission Date: 20211014
  Serious: Yes (Other)
  Sender: FDA-Public Use
  Company Number: CA-CELLTRION INC.-2021CA009347

PATIENT

DRUGS (2)
  1. RITUXIMAB. [Suspect]
     Active Substance: RITUXIMAB
     Indication: MICROSCOPIC POLYANGIITIS
     Dosage: 799.5 MG, 1 EVERY 1 WEEKS
     Route: 042
  2. RITUXIMAB. [Suspect]
     Active Substance: RITUXIMAB
     Indication: GRANULOMATOSIS WITH POLYANGIITIS
     Dosage: 500 MG, 1 EVERY 1 WEEKS
     Route: 042

REACTIONS (6)
  - Blood pressure fluctuation [Unknown]
  - Underdose [Unknown]
  - Hypoacusis [Unknown]
  - Tooth disorder [Unknown]
  - Intentional product use issue [Unknown]
  - Off label use [Unknown]
